FAERS Safety Report 9248168 (Version 2)
Quarter: 2013Q3

REPORT INFORMATION
  Report Type: Other
  Country: BR (occurrence: BR)
  Receive Date: 20130423
  Receipt Date: 20130703
  Transmission Date: 20140515
  Serious: No
  Sender: FDA-Public Use
  Company Number: PHHY2013BR039644

PATIENT
  Sex: Female

DRUGS (4)
  1. RITALINA [Suspect]
     Indication: FATIGUE
     Dosage: 1 DF, DAILY
     Route: 048
  2. RITALINA [Suspect]
     Indication: OFF LABEL USE
  3. RITALIN LA [Suspect]
     Indication: FATIGUE
     Dosage: 1 DF, DAILY
     Route: 048
  4. RITALIN LA [Suspect]
     Indication: OFF LABEL USE

REACTIONS (1)
  - No adverse event [Unknown]
